FAERS Safety Report 14029960 (Version 2)
Quarter: 2017Q4

REPORT INFORMATION
  Report Type: Report from Study
  Country: AU (occurrence: AU)
  Receive Date: 20171002
  Receipt Date: 20171010
  Transmission Date: 20180321
  Serious: Yes (Hospitalization, Other)
  Sender: FDA-Public Use
  Company Number: AU-REGENERON PHARMACEUTICALS, INC.-2017-23197

PATIENT

DRUGS (2)
  1. EYLEA [Suspect]
     Active Substance: AFLIBERCEPT
     Dosage: 3 INJECTIONS TO LEFT EYE
  2. EYLEA [Suspect]
     Active Substance: AFLIBERCEPT
     Indication: NEOVASCULAR AGE-RELATED MACULAR DEGENERATION
     Dosage: RIGHT EYE
     Route: 031
     Dates: start: 20160201

REACTIONS (2)
  - Neovascular age-related macular degeneration [Recovering/Resolving]
  - Dupuytren^s contracture [Recovered/Resolved]

NARRATIVE: CASE EVENT DATE: 2016
